FAERS Safety Report 5506926-X (Version None)
Quarter: 2007Q4

REPORT INFORMATION
  Report Type: 
  Country: None (occurrence: None)
  Receive Date: 20071105
  Receipt Date: 20071024
  Transmission Date: 20080405
  Serious: Yes (Hospitalization, Other)
  Sender: FDA-Public Use
  Company Number: US-PFIZER INC-2007089642

PATIENT
  Age: 72 Year
  Sex: Male
  Weight: 86.363 kg

DRUGS (9)
  1. DILANTIN [Suspect]
     Indication: CONVULSION
     Route: 048
  2. ANTIHYPERTENSIVES [Suspect]
     Indication: HYPERTENSION
  3. LASIX [Suspect]
     Indication: SWELLING
  4. AGGRENOX [Concomitant]
  5. PHENOBARBITAL TAB [Concomitant]
  6. BENICAR [Concomitant]
  7. LIPITOR [Concomitant]
  8. ALTACE [Concomitant]
  9. PLAVIX [Concomitant]

REACTIONS (5)
  - BACTERIAL INFECTION [None]
  - BLOOD PRESSURE DECREASED [None]
  - LIMB INJURY [None]
  - PRURITUS [None]
  - SWELLING [None]
